FAERS Safety Report 7876714-8 (Version None)
Quarter: 2011Q4

REPORT INFORMATION
  Report Type: 
  Country: None (occurrence: None)
  Receive Date: 20111031
  Receipt Date: 20111025
  Transmission Date: 20120403
  Serious: Yes (Hospitalization)
  Sender: FDA-Public Use
  Company Number: US-GILEAD-2011-0044520

PATIENT
  Sex: Female

DRUGS (14)
  1. LETAIRIS [Suspect]
     Indication: PULMONARY HYPERTENSION
     Dosage: 5 MG, UNK
     Route: 048
     Dates: start: 20110912
  2. ASPIRIN [Concomitant]
  3. VENTAVIS [Concomitant]
  4. CHOLECALCIFEROL [Concomitant]
  5. LOSARTAN POTASSIUM AND HYDROCHLOROTHIAZIDE [Concomitant]
  6. ALPRAZOLAM [Concomitant]
  7. CALCIUM [Concomitant]
  8. PREDNISONE [Concomitant]
  9. OMEPRAZOLE [Concomitant]
  10. CARVEDILOL [Concomitant]
  11. LETAIRIS [Suspect]
     Dosage: 10 MG, UNK
     Route: 048
  12. IRON [Concomitant]
  13. OPTIVITE PMT [Concomitant]
  14. VITAMIN C                          /00008001/ [Concomitant]

REACTIONS (2)
  - PNEUMONIA [None]
  - DYSPNOEA [None]
